FAERS Safety Report 6251223-0 (Version None)
Quarter: 2009Q2

REPORT INFORMATION
  Report Type: 
  Country: None (occurrence: None)
  Receive Date: 20090626
  Receipt Date: 20090617
  Transmission Date: 20091009
  Serious: Yes (Hospitalization)
  Sender: FDA-Public Use
  Company Number: VISP-NO-0906S-0280

PATIENT
  Age: 31 Year
  Sex: Female

DRUGS (1)
  1. VISIPAQUE [Suspect]
     Indication: DRUG USE FOR UNKNOWN INDICATION
     Dosage: SINGLE DOSE, I.V.
     Route: 042
     Dates: start: 20090430, end: 20090430

REACTIONS (3)
  - DERMATITIS EXFOLIATIVE [None]
  - PYREXIA [None]
  - VULVAL DISORDER [None]
